FAERS Safety Report 17957547 (Version 1)
Quarter: 2020Q2

REPORT INFORMATION
  Report Type: Spontaneous
  Country: AT (occurrence: AT)
  Receive Date: 20200629
  Receipt Date: 20200629
  Transmission Date: 20200714
  Serious: Yes (Hospitalization)
  Sender: FDA-Public Use
  Company Number: AT-PFIZER INC-2020245982

PATIENT
  Age: 68 Year
  Sex: Female
  Weight: 100 kg

DRUGS (2)
  1. AROMASIN [Suspect]
     Active Substance: EXEMESTANE
     Indication: HORMONE SUPPRESSION THERAPY
     Dosage: 25 MG, 1X/DAY 0-1-0
     Route: 048
     Dates: start: 2016
  2. BISOPROLOL [Concomitant]
     Active Substance: BISOPROLOL
     Dosage: UNK

REACTIONS (1)
  - Pulmonary embolism [Recovering/Resolving]

NARRATIVE: CASE EVENT DATE: 20200613
